FAERS Safety Report 7054091-2 (Version None)
Quarter: 2010Q4

REPORT INFORMATION
  Report Type: 
  Country: None (occurrence: None)
  Receive Date: 20101014
  Receipt Date: 20100917
  Transmission Date: 20110411
  Serious: Yes (Hospitalization)
  Sender: FDA-Public Use
  Company Number: 2010-3145

PATIENT
  Age: 70 Year
  Sex: Female

DRUGS (1)
  1. APO-GO0 AMPOULES (APO-GO) (APOMORPHINE HYDROCHLORIDE) (APOMORPHINE HYD [Suspect]
     Indication: PRODUCT USED FOR UNKNOWN INDICATION

REACTIONS (3)
  - CONDITION AGGRAVATED [None]
  - FEMORAL NECK FRACTURE [None]
  - SPEECH DISORDER [None]
